FAERS Safety Report 21451520 (Version 1)
Quarter: 2022Q4

REPORT INFORMATION
  Report Type: Spontaneous
  Country: SE (occurrence: SE)
  Receive Date: 20221013
  Receipt Date: 20221013
  Transmission Date: 20230112
  Serious: Yes (Hospitalization)
  Sender: FDA-Public Use
  Company Number: None

PATIENT
  Age: 79 Year
  Sex: Male

DRUGS (2)
  1. GEMCITABINE [Suspect]
     Active Substance: GEMCITABINE
     Indication: Bladder cancer recurrent
     Dosage: ONE DOSE EVERY WEEK FOR 6 WEEKS, INSTALLED IN THE BLADDER , DURATION : 31 DAYS
     Dates: start: 20220816, end: 20220916
  2. DOCETAXEL [Suspect]
     Active Substance: DOCETAXEL
     Indication: Bladder cancer recurrent
     Dosage: ONE DOSE EVERY WEEK FOR 6 WEEKS, INSTALLED IN THE BLADDER , DURATION : 31 DAYS
     Dates: start: 20220816, end: 20220916

REACTIONS (1)
  - Dyspnoea [Recovered/Resolved]

NARRATIVE: CASE EVENT DATE: 20220816
